FAERS Safety Report 9972087 (Version 1)
Quarter: 2014Q1

REPORT INFORMATION
  Report Type: Report from Study
  Country: US (occurrence: US)
  Receive Date: 20140306
  Receipt Date: 20140306
  Transmission Date: 20141002
  Serious: No
  Sender: FDA-Public Use
  Company Number: US-ABBVIE-13P-163-1152951-00

PATIENT
  Age: 32 Year
  Sex: Female

DRUGS (11)
  1. HUMIRA [Suspect]
     Indication: CROHN^S DISEASE
     Dates: start: 20130830
  2. MYCLONOR [Concomitant]
     Indication: OVARIAN CYST
     Dosage: EVERYDAY
  3. BACLOFEN [Concomitant]
     Indication: ABDOMINAL PAIN UPPER
     Dosage: 10MG DAILY
  4. PANTOPRAZOLE [Concomitant]
     Indication: GASTROOESOPHAGEAL REFLUX DISEASE
     Dosage: 40MG EVERYDAY
  5. ZYRTEC [Concomitant]
     Indication: HYPERSENSITIVITY
     Dosage: 10MG EVERYDAY
  6. FLONASE [Concomitant]
     Indication: HYPERSENSITIVITY
     Dosage: 2 INHALATIONS VIA NASAL EVERY DAY
  7. ENTOCORT [Concomitant]
     Indication: CROHN^S DISEASE
     Dosage: 9MG EVERYDAY
  8. SINGULAIR [Concomitant]
     Indication: HEADACHE
     Dosage: 10MG EVERYDAY
  9. IBUPROFEN [Concomitant]
     Indication: HEADACHE
  10. AMERGE [Concomitant]
     Indication: HEADACHE
  11. SULFA [Concomitant]
     Indication: PRODUCT USED FOR UNKNOWN INDICATION

REACTIONS (2)
  - Headache [Recovered/Resolved]
  - Nausea [Recovered/Resolved]
